FAERS Safety Report 9964295 (Version 2)
Quarter: 2014Q2

REPORT INFORMATION
  Report Type: Report from Study
  Country: DE (occurrence: DE)
  Receive Date: 20140305
  Receipt Date: 20140521
  Transmission Date: 20141212
  Serious: Yes (Other)
  Sender: FDA-Public Use
  Company Number: DE-INCYTE CORPORATION-2014IN000543

PATIENT
  Sex: Female
  Weight: 46.6 kg

DRUGS (12)
  1. INCB018424 [Suspect]
     Dosage: 20 MG, PER DAY
     Route: 048
     Dates: start: 20131122
  2. INCB018424 [Suspect]
     Dosage: 20 MG, PER DAY
     Route: 048
     Dates: start: 20131122
  3. TARGIN [Concomitant]
     Dosage: 10/5 MG PER DAY
     Dates: start: 20131001
  4. CALCIUM + VITAMIN D3 [Concomitant]
  5. BISOPROLOL [Concomitant]
     Dosage: UNK
  6. ALLOPURINOL [Concomitant]
     Dosage: UNK MG, UNK
  7. FUROSEMIDE [Concomitant]
     Dosage: UNK
  8. RAMIPRIL [Concomitant]
     Dosage: UNK
  9. L-THYROXIN [Concomitant]
     Dosage: UNK
  10. L-THYROXIN [Concomitant]
     Dosage: 75 UG, PER DAY
  11. DIGITOXIN [Concomitant]
     Dosage: UNK
  12. BLOOD TRANSFUSION, AUXILIARY PRODUCTS [Concomitant]
     Dosage: UNK
     Dates: start: 20021108

REACTIONS (1)
  - Iron overload [Not Recovered/Not Resolved]
